FAERS Safety Report 8034319-2 (Version None)
Quarter: 2012Q1

REPORT INFORMATION
  Report Type: 
  Country: None (occurrence: None)
  Receive Date: 20120110
  Receipt Date: 20120106
  Transmission Date: 20120608
  Serious: Yes (Other)
  Sender: FDA-Public Use
  Company Number: PHEH2008US06330

PATIENT
  Sex: Female
  Weight: 45.351 kg

DRUGS (70)
  1. TAMOXIFEN CITRATE [Concomitant]
  2. ZANTAC [Concomitant]
     Dosage: 300 MG, UNK
     Dates: start: 20050218
  3. HYDROCODONE BITARTRATE [Concomitant]
  4. OXYCODONE HCL AND ACETAMINOPHEN [Concomitant]
     Dosage: UNK
  5. TOBRADEX [Concomitant]
     Dosage: UNK
  6. ALLEGRA [Concomitant]
     Dosage: UNK
  7. CHOLESTYRAMINE [Concomitant]
     Dosage: UNK
  8. ALPRAZOLAM [Concomitant]
     Dosage: 0.25 MG, UNK
  9. ASPIRIN [Concomitant]
  10. CITALOPRAM HYDROBROMIDE [Concomitant]
  11. ZEN [Concomitant]
  12. ISOXSUPRINE HCL [Concomitant]
  13. LIPITOR [Concomitant]
     Dosage: 10 MG, UNK
  14. FOSAMAX [Concomitant]
     Dosage: UNK
  15. ISOXSUPRINE HCL [Concomitant]
     Dosage: 10 MG, UNK
  16. CENTRUM SILVER [Concomitant]
  17. CLINDAMYCIN HCL [Concomitant]
  18. EVOXAC [Concomitant]
     Dosage: 30 MG, UNK
  19. CIPROFLOXACIN HCL [Concomitant]
     Dosage: 500 MG, UNK
  20. PRAVACHOL [Concomitant]
     Dosage: 20 MG, UNK
  21. MACROBID [Concomitant]
     Dosage: 100 MG, UNK
  22. METROLOTION [Concomitant]
     Dosage: UNK
     Route: 061
  23. ACETIC ACID [Concomitant]
     Dosage: UNK
  24. LEVAQUIN [Concomitant]
     Dosage: 500 MG, UNK
  25. CLARITHROMYCIN [Concomitant]
     Dosage: 500 MG, UNK
  26. TRIAMCINOLONE [Concomitant]
     Dosage: UNK
  27. NITROFURANTOIN [Concomitant]
     Dosage: UNK
  28. TRETINOIN [Concomitant]
     Dosage: UNK
  29. SKELAXIN [Concomitant]
     Dosage: 800 MG, UNK
  30. FLAGYL [Concomitant]
     Dosage: 500 MG, QID FOR 6 DAYS
  31. EVISTA [Concomitant]
  32. SIMVASTATIN [Concomitant]
  33. AVITA [Concomitant]
  34. ZITHROMAX [Concomitant]
     Dosage: 250 MG, UNK
  35. MECLIZINE [Concomitant]
     Dosage: 12.5 MG, UNK
  36. LESCOL XL [Concomitant]
     Dosage: 80 MG, UNK
  37. PREVACID [Concomitant]
  38. MIACALCIN [Concomitant]
  39. ZOMETA [Suspect]
     Indication: OSTEOPOROSIS
     Dates: start: 20040322, end: 20051102
  40. DIAZEPAM [Concomitant]
     Dosage: 5 MG, UNK
  41. PROCHLORPERAZINE [Concomitant]
     Dosage: 5 MG, UNK
  42. FASLODEX [Concomitant]
  43. PROPRANOLOL HCL [Concomitant]
  44. RANITIDINE HCL [Concomitant]
  45. FEMARA [Concomitant]
  46. ZOCOR [Concomitant]
     Dosage: 10 MG, UNK
  47. ERYTHROMYCIN [Concomitant]
     Dosage: UNK
  48. TAMIFLU [Concomitant]
     Dosage: 75 MG
  49. COMBGEN [Concomitant]
     Dosage: UNK
  50. FLEXERIL [Concomitant]
  51. PRAVASTATIN SODIUM [Concomitant]
     Dosage: 10 MG, UNK
  52. PERIDEX [Concomitant]
  53. MULTIVITAMIN ^LAPPE^ [Concomitant]
  54. PROPOXYPHENE NAPSYLATE [Concomitant]
     Dosage: UNK
  55. RHINOCORT [Concomitant]
     Dosage: UNK
     Route: 045
  56. DIPHENOXYLATE HCL AND ATROPINE SULFATE [Concomitant]
     Dosage: UNK
  57. TANNIC ACID [Concomitant]
     Dosage: UNK
  58. CHLORHEXIDINE GLUCONATE [Concomitant]
     Dosage: UNK
  59. DIPHENHYDRAMINE HCL [Concomitant]
     Dosage: 50 MG, UNK
  60. CITRACAL PLUS [Concomitant]
  61. XANAX [Concomitant]
  62. RALOXIFENE HYDROCHLORIDE [Concomitant]
  63. EZETIMIBE [Concomitant]
     Dosage: 10 MG, QD,ORALLY
     Route: 048
  64. CALCIUM ACETATE [Concomitant]
  65. FOLIC ACID [Concomitant]
     Dosage: 1 MG, DAILY
  66. PRILOSEC [Concomitant]
     Dosage: 40 MG, UNK
     Dates: start: 20050218
  67. ZYRTEC [Concomitant]
     Dosage: 10 MG, UNK
  68. FISH OIL [Concomitant]
  69. BACTRIM [Concomitant]
  70. PROPRANOLOL [Concomitant]

REACTIONS (100)
  - BONE DISORDER [None]
  - TOOTH IMPACTED [None]
  - LIPIDS INCREASED [None]
  - SJOGREN'S SYNDROME [None]
  - STOMATITIS [None]
  - BACK PAIN [None]
  - DENTURE WEARER [None]
  - THYROID NEOPLASM [None]
  - INFLAMMATION [None]
  - DIZZINESS [None]
  - CONTUSION [None]
  - SPINAL CORD DISORDER [None]
  - HIATUS HERNIA [None]
  - MORTON'S NEUROMA [None]
  - ISCHAEMIA [None]
  - HYPOPHAGIA [None]
  - BONE LOSS [None]
  - PAIN IN JAW [None]
  - GASTROOESOPHAGEAL REFLUX DISEASE [None]
  - FEELING JITTERY [None]
  - JAW DISORDER [None]
  - EAR HAEMORRHAGE [None]
  - LACERATION [None]
  - ANGIOPATHY [None]
  - IMPETIGO [None]
  - PERIODONTAL DISEASE [None]
  - SCAR [None]
  - ANXIETY [None]
  - PHYSICAL DISABILITY [None]
  - OROPHARYNGEAL PAIN [None]
  - OSTEOARTHRITIS [None]
  - MUSCULOSKELETAL PAIN [None]
  - OSTEOPENIA [None]
  - MUCOSAL DRYNESS [None]
  - HYPERTENSION [None]
  - FISTULA [None]
  - GINGIVAL HYPERPLASIA [None]
  - THYROID ADENOMA [None]
  - NECK PAIN [None]
  - GAIT DISTURBANCE [None]
  - OSTEONECROSIS OF JAW [None]
  - LIFE EXPECTANCY SHORTENED [None]
  - INJURY [None]
  - DIARRHOEA [None]
  - HEART RATE IRREGULAR [None]
  - GINGIVAL RECESSION [None]
  - LARYNGEAL OEDEMA [None]
  - FACIAL PAIN [None]
  - FATIGUE [None]
  - MYALGIA [None]
  - CHRONIC SINUSITIS [None]
  - AORTIC ARTERIOSCLEROSIS [None]
  - DRY MOUTH [None]
  - COUGH [None]
  - OROPHARYNGEAL PLAQUE [None]
  - GINGIVAL OEDEMA [None]
  - TREMOR [None]
  - SUBGALEAL HAEMATOMA [None]
  - FOOT DEFORMITY [None]
  - DISCOMFORT [None]
  - EMOTIONAL DISTRESS [None]
  - OSTEOLYSIS [None]
  - OSTEOMYELITIS [None]
  - INFLUENZA [None]
  - NODULE [None]
  - FRACTURED SACRUM [None]
  - SPINAL OSTEOARTHRITIS [None]
  - HEART RATE INCREASED [None]
  - SPEECH DISORDER [None]
  - FIBROSIS [None]
  - GINGIVAL DISORDER [None]
  - MALAISE [None]
  - VITREOUS HAEMORRHAGE [None]
  - GASTROINTESTINAL MUCOSAL DISORDER [None]
  - HYPERTONIC BLADDER [None]
  - RHEUMATIC HEART DISEASE [None]
  - ANHEDONIA [None]
  - GINGIVAL BLEEDING [None]
  - GOITRE [None]
  - RESPIRATORY DISORDER [None]
  - DYSPNOEA [None]
  - FALL [None]
  - DECREASED APPETITE [None]
  - GINGIVITIS [None]
  - CHRONIC OBSTRUCTIVE PULMONARY DISEASE [None]
  - ACUTE SINUSITIS [None]
  - GASTROINTESTINAL TRACT ADENOMA [None]
  - TRIGONITIS [None]
  - MITRAL VALVE INCOMPETENCE [None]
  - CELLULITIS [None]
  - PAIN [None]
  - PALPITATIONS [None]
  - EUSTACHIAN TUBE DYSFUNCTION [None]
  - DYSPHONIA [None]
  - VIRAL INFECTION [None]
  - ROTATOR CUFF SYNDROME [None]
  - CONSTIPATION [None]
  - MELANOCYTIC NAEVUS [None]
  - ORAL HERPES [None]
  - POLLAKIURIA [None]
